FAERS Safety Report 7121336-X (Version None)
Quarter: 2010Q4

REPORT INFORMATION
  Report Type: 
  Country: None (occurrence: None)
  Receive Date: 20101124
  Receipt Date: 20100330
  Transmission Date: 20110411
  Serious: Yes (Other)
  Sender: FDA-Public Use
  Company Number: LU-BAXTER-2010BH001245

PATIENT
  Age: 16 Year
  Sex: Female

DRUGS (1)
  1. GAMMAGARD S/D [Suspect]
     Indication: PRODUCT USED FOR UNKNOWN INDICATION
     Route: 065
     Dates: start: 20100119, end: 20100119

REACTIONS (3)
  - CHILLS [None]
  - OEDEMA [None]
  - PYREXIA [None]
